FAERS Safety Report 7631125-5 (Version None)
Quarter: 2011Q3

REPORT INFORMATION
  Report Type: 
  Country: None (occurrence: None)
  Receive Date: 20110715
  Receipt Date: 20110627
  Transmission Date: 20111222
  Serious: Yes (Hospitalization)
  Sender: FDA-Public Use
  Company Number: 2280705-2011-00018

PATIENT
  Age: 19 Month
  Sex: Male

DRUGS (1)
  1. BABY ORAJEL DAYTIME/NIGHTTIME TWIN PACK ORAL PAIN RELIEVER FOR TEETHIN [Suspect]
     Indication: TEETHING
     Dosage: ORAL APPLICATION 3X/DAY
     Dates: start: 20110617, end: 20110623

REACTIONS (3)
  - METHAEMOGLOBINAEMIA [None]
  - PRODUCT QUALITY ISSUE [None]
  - LIP SWELLING [None]
